FAERS Safety Report 4818861-0 (Version None)
Quarter: 2005Q4

REPORT INFORMATION
  Report Type: 
  Country: None (occurrence: None)
  Receive Date: 20051101
  Receipt Date: 20051019
  Transmission Date: 20060501
  Serious: Yes (Other)
  Sender: FDA-Public Use
  Company Number: 107851ISR

PATIENT
  Age: 70 Year
  Sex: Female

DRUGS (2)
  1. CARBOPLATIN [Suspect]
     Indication: BREAST CANCER
  2. DOCETAXEL [Concomitant]

REACTIONS (9)
  - ABASIA [None]
  - ASTHENIA [None]
  - CEREBELLAR ATROPHY [None]
  - CEREBELLAR SYNDROME [None]
  - COORDINATION ABNORMAL [None]
  - DYSSTASIA [None]
  - GAIT DISTURBANCE [None]
  - NAUSEA [None]
  - TREMOR [None]
